FAERS Safety Report 14933059 (Version 5)
Quarter: 2019Q4

REPORT INFORMATION
  Report Type: Spontaneous
  Country: US (occurrence: US)
  Receive Date: 20180524
  Receipt Date: 20191002
  Transmission Date: 20200122
  Serious: Yes (Hospitalization)
  Sender: FDA-Public Use
  Company Number: US-PFIZER INC-2018211408

PATIENT
  Age: 16 Year
  Sex: Male
  Weight: 74.37 kg

DRUGS (6)
  1. GENOTROPIN MQ [Suspect]
     Active Substance: SOMATROPIN
     Indication: HYPOPITUITARISM
     Dosage: 1.2 MG, DAILY
     Route: 058
  2. ATENOLOL. [Concomitant]
     Active Substance: ATENOLOL
     Dosage: 100 MG, UNK
  3. GENOTROPIN MQ [Suspect]
     Active Substance: SOMATROPIN
     Indication: GROWTH HORMONE DEFICIENCY
     Dosage: 0.4 MG, 1X/DAY [INJECT 0.4 MG UNDER THE SKIN]
     Route: 058
  4. GENOTROPIN MQ [Suspect]
     Active Substance: SOMATROPIN
     Indication: EPILEPSY
     Dosage: 1 MG NOW
     Dates: start: 2014
  5. GENOTROPIN MQ [Suspect]
     Active Substance: SOMATROPIN
     Indication: SEIZURE
     Dosage: 1 MG, DAILY
     Route: 058
  6. GENOTROPIN MQ [Suspect]
     Active Substance: SOMATROPIN
     Indication: DWARFISM
     Dosage: 0.2 MG, DAILY
     Route: 058

REACTIONS (7)
  - Headache [Not Recovered/Not Resolved]
  - Hypoaesthesia [Not Recovered/Not Resolved]
  - Bone disorder [Unknown]
  - Arthralgia [Not Recovered/Not Resolved]
  - Myalgia [Not Recovered/Not Resolved]
  - Muscle disorder [Unknown]
  - Intervertebral disc protrusion [Not Recovered/Not Resolved]
